FAERS Safety Report 12679919 (Version 3)
Quarter: 2016Q4

REPORT INFORMATION
  Report Type: Spontaneous
  Country: JP (occurrence: JP)
  Receive Date: 20160824
  Receipt Date: 20161021
  Transmission Date: 20170207
  Serious: Yes (Death, Hospitalization, Other)
  Sender: FDA-Public Use
  Company Number: JP-ROCHE-1817751

PATIENT
  Age: 75 Year
  Sex: Male
  Weight: 35 kg

DRUGS (9)
  1. DECADRON [Concomitant]
     Active Substance: DEXAMETHASONE
     Indication: GASTRIC CANCER
     Dosage: THE FRACTIONATION DOSE FREQUENCY IS UNCERTAIN. ?DOSE INTERVAL UNCERTAINTY?THREE DAYS
     Route: 048
     Dates: start: 20160225, end: 20160509
  2. MUCOSOLVAN [Concomitant]
     Active Substance: AMBROXOL HYDROCHLORIDE
     Route: 048
  3. CISPLATIN. [Suspect]
     Active Substance: CISPLATIN
     Indication: GASTRIC CANCER
     Dosage: THE FRACTIONATION DOSE FREQUENCY IS UNCERTAIN. ?DOSE INTERVAL UNCERTAINTY
     Route: 041
     Dates: start: 20160226, end: 20160506
  4. DOGMATYL [Concomitant]
     Active Substance: SULPIRIDE
     Route: 048
  5. LAC-B [Concomitant]
     Active Substance: BIFIDOBACTERIUM SPP.
     Route: 048
  6. EMEND [Concomitant]
     Active Substance: APREPITANT
     Indication: GASTRIC CANCER
     Dosage: 1 DAY 125MG?ON THE SECOND AND FOLLOWING DAYS 80MG
     Route: 048
     Dates: start: 20160225, end: 20160509
  7. MUCODYNE [Concomitant]
     Active Substance: CARBOCYSTEINE
     Route: 048
  8. HERCEPTIN [Suspect]
     Active Substance: TRASTUZUMAB
     Indication: GASTRIC CANCER
     Route: 041
     Dates: start: 20160226, end: 20160506
  9. XELODA [Suspect]
     Active Substance: CAPECITABINE
     Indication: GASTRIC CANCER
     Dosage: 2 WEEKS ADMINISTRATION FOLLOWED BY 1 WEEK REST
     Route: 048
     Dates: start: 20160226, end: 20160518

REACTIONS (8)
  - Gastric cancer [Fatal]
  - Hyperosmolar hyperglycaemic state [Unknown]
  - Pneumonia aspiration [Fatal]
  - Vomiting [Unknown]
  - Interstitial lung disease [Fatal]
  - Aortic thrombosis [Not Recovered/Not Resolved]
  - Decreased appetite [Unknown]
  - Febrile neutropenia [Fatal]

NARRATIVE: CASE EVENT DATE: 201605
